FAERS Safety Report 8923568 (Version 1)
Quarter: 2012Q4

REPORT INFORMATION
  Report Type: Spontaneous
  Country: US (occurrence: None)
  Receive Date: 20121126
  Receipt Date: 20121126
  Transmission Date: 20130627
  Serious: Yes (Other)
  Sender: FDA-Public Use
  Company Number: None

PATIENT
  Age: 45 Year
  Sex: Female
  Weight: 68.04 kg

DRUGS (1)
  1. KENALOG [Suspect]
     Indication: SPINAL STENOSIS NOS

REACTIONS (2)
  - Product contamination microbial [None]
  - Product contamination microbial [None]
